FAERS Safety Report 6705758-4 (Version None)
Quarter: 2010Q2

REPORT INFORMATION
  Report Type: 
  Country: None (occurrence: None)
  Receive Date: 20100503
  Receipt Date: 20080908
  Transmission Date: 20101027
  Serious: Yes (Other)
  Sender: FDA-Public Use
  Company Number: SE-BAYER-200826913GPV

PATIENT
  Age: 36 Year
  Sex: Female

DRUGS (1)
  1. MIRENA [Suspect]
     Indication: DRUG USE FOR UNKNOWN INDICATION
     Route: 015
     Dates: start: 20080627, end: 20080828

REACTIONS (2)
  - HEADACHE [None]
  - SYNCOPE [None]
